FAERS Safety Report 8236176 (Version 10)
Quarter: 2014Q2

REPORT INFORMATION
  Report Type: Spontaneous
  Country: US (occurrence: US)
  Receive Date: 20111108
  Receipt Date: 20140521
  Transmission Date: 20141212
  Serious: Yes (Life-Threatening, Hospitalization, Other)
  Sender: FDA-Public Use
  Company Number: US-ASTRAZENECA-2011SE65397

PATIENT
  Age: 61 Year
  Sex: Female
  Weight: 69.4 kg

DRUGS (58)
  1. NEXIUM [Suspect]
     Indication: GASTROOESOPHAGEAL REFLUX PROPHYLAXIS
     Route: 048
     Dates: start: 2001, end: 2005
  2. NEXIUM [Suspect]
     Indication: GASTROOESOPHAGEAL REFLUX DISEASE
     Route: 048
     Dates: start: 2001, end: 2005
  3. NEXIUM [Suspect]
     Indication: DYSPEPSIA
     Route: 048
     Dates: start: 2001, end: 2005
  4. NEXIUM [Suspect]
     Indication: ABDOMINAL PAIN UPPER
     Route: 048
     Dates: start: 2001, end: 2005
  5. NEXIUM [Suspect]
     Indication: PROPHYLAXIS AGAINST GASTROINTESTINAL ULCER
     Route: 048
     Dates: start: 2001, end: 2005
  6. NEXIUM [Suspect]
     Indication: APHAGIA
     Route: 048
     Dates: start: 2001, end: 2005
  7. NEXIUM [Suspect]
     Indication: HAEMATEMESIS
     Route: 048
     Dates: start: 2001, end: 2005
  8. NEXIUM [Suspect]
     Indication: GASTROOESOPHAGEAL REFLUX PROPHYLAXIS
     Route: 048
     Dates: start: 2005, end: 2011
  9. NEXIUM [Suspect]
     Indication: GASTROOESOPHAGEAL REFLUX DISEASE
     Route: 048
     Dates: start: 2005, end: 2011
  10. NEXIUM [Suspect]
     Indication: DYSPEPSIA
     Route: 048
     Dates: start: 2005, end: 2011
  11. NEXIUM [Suspect]
     Indication: ABDOMINAL PAIN UPPER
     Route: 048
     Dates: start: 2005, end: 2011
  12. NEXIUM [Suspect]
     Indication: PROPHYLAXIS AGAINST GASTROINTESTINAL ULCER
     Route: 048
     Dates: start: 2005, end: 2011
  13. NEXIUM [Suspect]
     Indication: APHAGIA
     Route: 048
     Dates: start: 2005, end: 2011
  14. NEXIUM [Suspect]
     Indication: HAEMATEMESIS
     Route: 048
     Dates: start: 2005, end: 2011
  15. NEXIUM [Suspect]
     Indication: GASTROOESOPHAGEAL REFLUX PROPHYLAXIS
     Route: 048
     Dates: start: 2011, end: 201202
  16. NEXIUM [Suspect]
     Indication: GASTROOESOPHAGEAL REFLUX DISEASE
     Route: 048
     Dates: start: 2011, end: 201202
  17. NEXIUM [Suspect]
     Indication: DYSPEPSIA
     Route: 048
     Dates: start: 2011, end: 201202
  18. NEXIUM [Suspect]
     Indication: ABDOMINAL PAIN UPPER
     Route: 048
     Dates: start: 2011, end: 201202
  19. NEXIUM [Suspect]
     Indication: PROPHYLAXIS AGAINST GASTROINTESTINAL ULCER
     Route: 048
     Dates: start: 2011, end: 201202
  20. NEXIUM [Suspect]
     Indication: APHAGIA
     Route: 048
     Dates: start: 2011, end: 201202
  21. NEXIUM [Suspect]
     Indication: HAEMATEMESIS
     Route: 048
     Dates: start: 2011, end: 201202
  22. NEXIUM [Suspect]
     Indication: GASTROOESOPHAGEAL REFLUX PROPHYLAXIS
     Route: 048
     Dates: start: 2011, end: 201404
  23. NEXIUM [Suspect]
     Indication: GASTROOESOPHAGEAL REFLUX DISEASE
     Route: 048
     Dates: start: 2011, end: 201404
  24. NEXIUM [Suspect]
     Indication: DYSPEPSIA
     Route: 048
     Dates: start: 2011, end: 201404
  25. NEXIUM [Suspect]
     Indication: ABDOMINAL PAIN UPPER
     Route: 048
     Dates: start: 2011, end: 201404
  26. NEXIUM [Suspect]
     Indication: PROPHYLAXIS AGAINST GASTROINTESTINAL ULCER
     Route: 048
     Dates: start: 2011, end: 201404
  27. NEXIUM [Suspect]
     Indication: APHAGIA
     Route: 048
     Dates: start: 2011, end: 201404
  28. NEXIUM [Suspect]
     Indication: HAEMATEMESIS
     Route: 048
     Dates: start: 2011, end: 201404
  29. PRILOSEC [Suspect]
     Indication: PROPHYLAXIS AGAINST GASTROINTESTINAL ULCER
     Dosage: GENERIC
     Route: 048
  30. PRILOSEC [Suspect]
     Indication: PROPHYLAXIS AGAINST GASTROINTESTINAL ULCER
     Route: 048
  31. PRILOSEC [Suspect]
     Indication: PROPHYLAXIS AGAINST GASTROINTESTINAL ULCER
     Route: 048
  32. PRILOSEC OTC [Suspect]
     Indication: GASTROOESOPHAGEAL REFLUX DISEASE
     Dosage: DAILY
     Route: 048
  33. IBUPROFEN/MOTRIN [Suspect]
  34. MYLANTA [Suspect]
     Route: 065
  35. MUSCLE RELAXERS [Suspect]
     Route: 065
  36. TAGAMET [Suspect]
  37. ZANTAC [Concomitant]
  38. STEROID [Concomitant]
  39. PEPTIDASE [Concomitant]
  40. OTHER PAIN MEDICATION [Concomitant]
  41. FENTANYL [Concomitant]
     Indication: PAIN
     Dosage: 100 MG EVERY THIRD DAY
     Route: 061
  42. OXYCODONE [Concomitant]
     Indication: BREAKTHROUGH PAIN
     Route: 048
  43. VALIUM [Concomitant]
     Indication: ANXIETY DISORDER
     Route: 048
  44. COMBIVENT [Concomitant]
     Indication: ASTHMA
     Route: 055
  45. COMBIVENT [Concomitant]
     Indication: CHRONIC OBSTRUCTIVE PULMONARY DISEASE
     Route: 055
  46. FLOVENT [Concomitant]
     Indication: ASTHMA
     Route: 055
  47. FLOVENT [Concomitant]
     Indication: CHRONIC OBSTRUCTIVE PULMONARY DISEASE
     Route: 055
  48. SPIRIVA [Concomitant]
     Indication: ASTHMA
     Route: 055
  49. SPIRIVA [Concomitant]
     Indication: CHRONIC OBSTRUCTIVE PULMONARY DISEASE
     Route: 055
  50. SINGULAIR [Concomitant]
     Indication: ASTHMA
     Route: 048
  51. SINGULAIR [Concomitant]
     Indication: CHRONIC OBSTRUCTIVE PULMONARY DISEASE
     Route: 048
  52. CATAPRES [Concomitant]
     Indication: HYPERTENSION
     Dosage: FREQUENCY: WEEK
     Route: 061
  53. EFFEXOR [Concomitant]
     Indication: HYPERTENSION
     Route: 048
  54. AMITRIPTYLLINE [Concomitant]
     Route: 048
  55. HEART PILL [Concomitant]
     Indication: CARDIAC DISORDER
  56. 28 DIFFERENT MEDICATIONS [Concomitant]
  57. TUMS [Concomitant]
  58. PEPCID [Concomitant]

REACTIONS (54)
  - Hip fracture [Unknown]
  - Spinal fracture [Unknown]
  - Coma [Unknown]
  - Pneumonia [Unknown]
  - Asthma [Unknown]
  - Chronic obstructive pulmonary disease [Unknown]
  - Ulcer haemorrhage [Unknown]
  - Cardiac neoplasm unspecified [Unknown]
  - Haematemesis [Unknown]
  - Hypertension [Unknown]
  - Respiratory disorder [Unknown]
  - Cardiac failure congestive [Unknown]
  - Gait disturbance [Unknown]
  - Abasia [Unknown]
  - Thrombosis [Unknown]
  - Cerebrovascular accident [Unknown]
  - Myocardial infarction [Unknown]
  - Neoplasm malignant [Unknown]
  - Dyspnoea [Not Recovered/Not Resolved]
  - Accident at work [Unknown]
  - Back disorder [Unknown]
  - Cardiac disorder [Unknown]
  - Pain [Unknown]
  - Musculoskeletal chest pain [Unknown]
  - Gastric disorder [Not Recovered/Not Resolved]
  - Migraine [Unknown]
  - Gastrooesophageal reflux disease [Unknown]
  - Dyspepsia [Unknown]
  - Wheezing [Unknown]
  - Lung disorder [Unknown]
  - Pain in extremity [Unknown]
  - Back pain [Unknown]
  - Exostosis [Unknown]
  - Dyspepsia [Unknown]
  - Gastrointestinal disorder [Unknown]
  - Adverse event [Unknown]
  - Helicobacter infection [Unknown]
  - Aphagia [Not Recovered/Not Resolved]
  - Feeling abnormal [Unknown]
  - Dysstasia [Unknown]
  - Constipation [Unknown]
  - Headache [Unknown]
  - Insomnia [Unknown]
  - Malaise [Unknown]
  - Diarrhoea [Unknown]
  - Vomiting [Not Recovered/Not Resolved]
  - Oedema peripheral [Unknown]
  - Abdominal pain upper [Not Recovered/Not Resolved]
  - Circumstance or information capable of leading to medication error [Unknown]
  - Off label use [Unknown]
  - Off label use [Unknown]
  - Drug dose omission [Not Recovered/Not Resolved]
  - Drug ineffective [Unknown]
  - Intentional product misuse [Unknown]
